FAERS Safety Report 16841774 (Version 2)
Quarter: 2019Q3

REPORT INFORMATION
  Report Type: Spontaneous
  Country: JP (occurrence: JP)
  Receive Date: 20190923
  Receipt Date: 20190930
  Transmission Date: 20191005
  Serious: Yes (Death, Hospitalization)
  Sender: FDA-Public Use
  Company Number: PHJP2019JP012490

PATIENT
  Age: 89 Year
  Sex: Female

DRUGS (1)
  1. ZOLEDRONATE [Suspect]
     Active Substance: ZOLEDRONIC ACID
     Indication: PRODUCT USED FOR UNKNOWN INDICATION
     Dosage: UNK
     Route: 041

REACTIONS (5)
  - Respiration abnormal [Fatal]
  - Cough [Fatal]
  - Pyrexia [Fatal]
  - Pneumonia [Fatal]
  - Cardiac failure [Fatal]
